FAERS Safety Report 8403109-0 (Version None)
Quarter: 2012Q2

REPORT INFORMATION
  Report Type: 
  Country: None (occurrence: None)
  Receive Date: 20120601
  Receipt Date: 20120521
  Transmission Date: 20120825
  Serious: Yes (Hospitalization)
  Sender: FDA-Public Use
  Company Number: IT-CELGENEUS-083-21880-11103375

PATIENT
  Sex: Female

DRUGS (7)
  1. LASIX [Concomitant]
     Route: 048
  2. VITAMIN D SUPPLEMENTS [Concomitant]
     Indication: OSTEOPOROSIS
     Route: 065
  3. DIPHOSPHONATE [Concomitant]
     Indication: OSTEOPOROSIS
     Route: 065
  4. ALENDRONATE SODIUM [Concomitant]
     Route: 048
  5. COUMADIN [Concomitant]
     Route: 048
  6. CALCIUM [Concomitant]
     Indication: OSTEOPOROSIS
     Route: 065
  7. REVLIMID [Suspect]
     Route: 048
     Dates: start: 20080625, end: 20100113

REACTIONS (1)
  - BREAST CANCER IN SITU [None]
